FAERS Safety Report 11745039 (Version 1)
Quarter: 2015Q4

REPORT INFORMATION
  Report Type: Spontaneous
  Country: DE (occurrence: DE)
  Receive Date: 20151117
  Receipt Date: 20151117
  Transmission Date: 20160304
  Serious: Yes (Death, Hospitalization)
  Sender: FDA-Public Use
  Company Number: DE-ALVOGEN-2015-ALVOGEN-019793

PATIENT
  Age: 20 Year
  Sex: Female

DRUGS (6)
  1. CERTOPARIN SODIUM [Concomitant]
     Active Substance: CERTOPARIN SODIUM
     Indication: PRODUCT USED FOR UNKNOWN INDICATION
  2. IFOSFAMIDE. [Concomitant]
     Active Substance: IFOSFAMIDE
     Indication: SYNOVIAL SARCOMA
     Dosage: ON DAYS 1-2 AND 22-23 OF THE RADIATION COURSE
  3. RIVAROXABAN [Concomitant]
     Active Substance: RIVAROXABAN
     Indication: PRODUCT USED FOR UNKNOWN INDICATION
  4. IFOSFAMIDE. [Concomitant]
     Active Substance: IFOSFAMIDE
     Indication: SYNOVIAL SARCOMA
     Dosage: 3 G/M^2 ON DAYS 1-3
  5. DOXORUBICIN [Suspect]
     Active Substance: DOXORUBICIN
     Indication: SYNOVIAL SARCOMA
     Dosage: 4 CYCLES OF DOXORUBICIN
  6. HEPARIN [Concomitant]
     Active Substance: HEPARIN SODIUM
     Indication: PRODUCT USED FOR UNKNOWN INDICATION
     Route: 042

REACTIONS (4)
  - Cardiotoxicity [Fatal]
  - Sepsis [None]
  - Cardiogenic shock [Fatal]
  - Cardiomyopathy [None]
